FAERS Safety Report 5403300-1 (Version None)
Quarter: 2007Q3

REPORT INFORMATION
  Report Type: 
  Country: None (occurrence: None)
  Receive Date: 20070801
  Receipt Date: 20070717
  Transmission Date: 20080115
  Serious: Yes (Hospitalization)
  Sender: FDA-Public Use
  Company Number: JP-PFIZER INC-2007062866

PATIENT
  Sex: Male

DRUGS (7)
  1. MIGLITOL TABLET [Suspect]
     Indication: TYPE 2 DIABETES MELLITUS
     Dosage: DAILY DOSE:150MG
     Route: 048
     Dates: start: 20070301, end: 20070518
  2. ADALAT [Concomitant]
     Dosage: DAILY DOSE:40MG
     Route: 048
     Dates: start: 20010925, end: 20070518
  3. ALMARL [Concomitant]
     Dosage: DAILY DOSE:10MG
     Route: 048
     Dates: start: 20010925, end: 20070418
  4. VALSARTAN [Concomitant]
     Indication: HYPERTENSION
     Dosage: DAILY DOSE:80MG
     Route: 048
     Dates: start: 20020110, end: 20070518
  5. BASEN [Concomitant]
     Indication: TYPE 2 DIABETES MELLITUS
     Dosage: DAILY DOSE:.6MG
     Route: 048
     Dates: start: 20020223, end: 20070518
  6. ACTOS [Concomitant]
     Indication: TYPE 2 DIABETES MELLITUS
     Route: 048
     Dates: start: 20061212, end: 20070518
  7. NATRIX [Concomitant]
     Indication: HYPERTENSION
     Dosage: DAILY DOSE:1MG
     Route: 048
     Dates: start: 20061212, end: 20070518

REACTIONS (1)
  - DIABETES MELLITUS [None]
